FAERS Safety Report 21774551 (Version 3)
Quarter: 2023Q1

REPORT INFORMATION
  Report Type: Spontaneous
  Country: DE (occurrence: DE)
  Receive Date: 20221224
  Receipt Date: 20230207
  Transmission Date: 20230418
  Serious: Yes (Other)
  Sender: FDA-Public Use
  Company Number: DE-PFIZER INC-PV202200124378

PATIENT
  Age: 73 Year
  Sex: Female
  Weight: 60 kg

DRUGS (4)
  1. LETROZOLE [Suspect]
     Active Substance: LETROZOLE
     Indication: Breast cancer
     Dosage: 2.5 MG, QD
     Route: 048
     Dates: start: 20220514
  2. PALBOCICLIB [Suspect]
     Active Substance: PALBOCICLIB
     Indication: Breast cancer
     Dosage: 100 MG, CYCLIC (100 MG, DAILY FROM DAY 1 TO DAY 21 EVERY 28-DAY CYCLE)
     Route: 048
     Dates: start: 20220514, end: 20221214
  3. PALBOCICLIB [Suspect]
     Active Substance: PALBOCICLIB
     Dosage: 125 MG, CYCLIC (125 MG, DAILY FROM DAY 1 TO DAY 21 EVERY 28-DAY CYCLE)
     Route: 048
     Dates: start: 20220611, end: 20221103
  4. PALBOCICLIB [Suspect]
     Active Substance: PALBOCICLIB
     Dosage: 75 MG, CYCLIC, (75 MG, DAILY FROM DAY 1 TO DAY 21 EVERY 28-DAY CYCLE)
     Route: 048
     Dates: start: 20221228

REACTIONS (1)
  - Haemolytic anaemia [Recovering/Resolving]

NARRATIVE: CASE EVENT DATE: 20221213
